FAERS Safety Report 4897524-X (Version None)
Quarter: 2005Q4

REPORT INFORMATION
  Report Type: 
  Country: None (occurrence: None)
  Receive Date: 20051223
  Receipt Date: 20050912
  Transmission Date: 20060501
  Serious: No
  Sender: FDA-Public Use
  Company Number: 05P-163-0310716-00

PATIENT
  Age: 89 Year
  Sex: Female

DRUGS (2)
  1. HUMIRA [Suspect]
     Dosage: 40 MG, 1 IN 1 WK, SUBCUTANEOUS
     Route: 058
     Dates: start: 20050801
  2. MANY MEDICATION [Concomitant]

REACTIONS (1)
  - DYSPNOEA [None]
